FAERS Safety Report 17830559 (Version 1)
Quarter: 2020Q2

REPORT INFORMATION
  Report Type: Spontaneous
  Country: US (occurrence: US)
  Receive Date: 20200527
  Receipt Date: 20200527
  Transmission Date: 20200714
  Serious: No
  Sender: FDA-Public Use
  Company Number: US-JNJFOC-20200522528

PATIENT
  Sex: Male
  Weight: 73.55 kg

DRUGS (3)
  1. INVEGA SUSTENNA [Suspect]
     Active Substance: PALIPERIDONE PALMITATE
  2. INVEGA SUSTENNA [Suspect]
     Active Substance: PALIPERIDONE PALMITATE
     Indication: SCHIZOPHRENIA
     Dosage: STARTED INVEGA SUSTENNA IN MARCH AND HAD ONE DOSE
     Route: 030
     Dates: start: 202003
  3. INVEGA SUSTENNA [Suspect]
     Active Substance: PALIPERIDONE PALMITATE

REACTIONS (5)
  - Confusional state [Unknown]
  - Motor dysfunction [Unknown]
  - Memory impairment [Unknown]
  - Salivary hypersecretion [Unknown]
  - Dysarthria [Unknown]

NARRATIVE: CASE EVENT DATE: 2020
